FAERS Safety Report 4738236-2 (Version None)
Quarter: 2005Q3

REPORT INFORMATION
  Report Type: 
  Country: None (occurrence: None)
  Receive Date: 20050803
  Receipt Date: 20050715
  Transmission Date: 20060218
  Serious: Yes (Death, Life-Threatening, Hospitalization)
  Sender: FDA-Public Use
  Company Number: 107202ISR

PATIENT
  Age: 62 Year
  Sex: Female

DRUGS (7)
  1. METHOTREXATE [Suspect]
     Indication: RHEUMATOID ARTHRITIS
     Dosage: 15 MILLIGRAM INTRAMUSCULAR
     Route: 030
     Dates: end: 20050425
  2. DIPYRONE TAB [Suspect]
     Dosage: ORAL
     Route: 048
  3. PREDNISOLONE [Suspect]
     Dosage: ORAL
     Route: 048
     Dates: end: 20050425
  4. PROPRANOLOL HYDROCHLORIDE [Concomitant]
  5. ACETYLDIGOXIN [Concomitant]
  6. FENTANYL [Concomitant]
  7. TORSEMIDE [Concomitant]

REACTIONS (10)
  - ACUTE RESPIRATORY FAILURE [None]
  - GASTROENTERITIS [None]
  - HAEMORRHAGE [None]
  - HERPES ZOSTER [None]
  - INCREASED UPPER AIRWAY SECRETION [None]
  - PANCYTOPENIA [None]
  - PNEUMONIA [None]
  - RENAL FAILURE ACUTE [None]
  - SEPSIS [None]
  - STOMATITIS [None]
